FAERS Safety Report 6752880-2 (Version None)
Quarter: 2010Q2

REPORT INFORMATION
  Report Type: 
  Country: None (occurrence: None)
  Receive Date: 20100603
  Receipt Date: 20100521
  Transmission Date: 20101027
  Serious: Yes (Hospitalization)
  Sender: FDA-Public Use
  Company Number: JP-SHIRE-SPV1-2010-00553

PATIENT

DRUGS (23)
  1. LANTHANUM CARBONATE [Suspect]
     Indication: HYPERPHOSPHATAEMIA
     Route: 048
     Dates: start: 20090529, end: 20090625
  2. LANTHANUM CARBONATE [Suspect]
     Route: 048
     Dates: start: 20090626, end: 20090827
  3. LANTHANUM CARBONATE [Suspect]
     Route: 048
     Dates: start: 20090828, end: 20090827
  4. LANTHANUM CARBONATE [Suspect]
     Route: 048
     Dates: start: 20100311
  5. CALCIUM CARBONATE [Concomitant]
     Indication: HYPERPHOSPHATAEMIA
     Dosage: 3.5 G, UNK
     Route: 048
     Dates: start: 19940607, end: 20100303
  6. CALCIUM CARBONATE [Concomitant]
     Dosage: 3.5 G, UNKNOWN
     Route: 048
     Dates: start: 20100311
  7. LOPEMIN [Concomitant]
     Dosage: 1 MG, UNKNOWN
     Route: 048
     Dates: start: 20100301, end: 20100303
  8. MEXITIL [Concomitant]
     Dosage: 300 MG, UNKNOWN
     Route: 048
  9. ASPIRIN [Concomitant]
     Dosage: 100 MG, UNKNOWN
     Route: 048
  10. PARIET [Concomitant]
     Dosage: 10 MG, UNKNOWN
     Route: 048
  11. ANPLAG [Concomitant]
     Dosage: 200 MG, UNKNOWN
     Route: 048
  12. RISUMIC [Concomitant]
     Dosage: 10 MG, OTHER (TIW)
  13. EFFORTIL [Concomitant]
     Dosage: 30 MG, TIW
     Route: 042
  14. FESIN [Concomitant]
     Dosage: 40 MG, OW
     Route: 042
  15. ANAFRANIL [Concomitant]
     Dosage: 25 MG, UNKNOWN
     Route: 048
  16. PAXIL [Concomitant]
     Dosage: 20 MG, UNKNOWN
     Route: 048
  17. HALCION [Concomitant]
     Dosage: .25 MG, UNKNOWN
     Route: 048
  18. SOLANAX [Concomitant]
     Dosage: .4 MG, UNKNOWN
  19. RIVOTRIL [Concomitant]
     Dosage: 1 MG, UNKNOWN
     Route: 048
  20. DEPAS [Concomitant]
     Dosage: .5 MG, UNKNOWN
     Route: 048
  21. SEPAZON [Concomitant]
     Dosage: 1 MG, UNKNOWN
     Route: 048
  22. PYRETHIA                           /00033002/ [Concomitant]
     Dosage: 15 MG, UNKNOWN
     Route: 048
  23. NESP [Concomitant]
     Dosage: 10 UG, UNKNOWN
     Route: 042

REACTIONS (2)
  - GASTRIC ULCER [None]
  - GASTROINTESTINAL HAEMORRHAGE [None]
